FAERS Safety Report 9111860 (Version 1)
Quarter: 2013Q1

REPORT INFORMATION
  Report Type: Spontaneous
  Country: US (occurrence: US)
  Receive Date: 20130219
  Receipt Date: 20130219
  Transmission Date: 20140127
  Serious: No
  Sender: FDA-Public Use
  Company Number: US-BRISTOL-MYERS SQUIBB COMPANY-16626939

PATIENT
  Age: 59 Year
  Sex: Male
  Weight: 90.7 kg

DRUGS (5)
  1. ORENCIA FOR INJ [Suspect]
     Indication: RHEUMATOID ARTHRITIS
     Dosage: LAST INJECTION: 18MAY2012?LOT NO:1M47877 EXP DT:NOV13
     Route: 058
     Dates: start: 20120518
  2. LISINOPRIL [Concomitant]
  3. GABAPENTIN [Concomitant]
  4. LORTAB [Concomitant]
  5. PREDNISONE [Concomitant]

REACTIONS (4)
  - Headache [Recovered/Resolved]
  - Respiratory tract infection [Not Recovered/Not Resolved]
  - Dyspepsia [Not Recovered/Not Resolved]
  - Insomnia [Not Recovered/Not Resolved]
